FAERS Safety Report 10404766 (Version 4)
Quarter: 2014Q3

REPORT INFORMATION
  Report Type: Spontaneous
  Country: HR (occurrence: HR)
  Receive Date: 20140825
  Receipt Date: 20140916
  Transmission Date: 20150326
  Serious: Yes (Other)
  Sender: FDA-Public Use
  Company Number: HR-ROCHE-1450966

PATIENT
  Age: 41 Year
  Sex: Female
  Weight: 80 kg

DRUGS (7)
  1. PEGASYS [Suspect]
     Active Substance: PEGINTERFERON ALFA-2A
     Indication: HEPATITIS C
     Route: 058
     Dates: start: 20140307, end: 20140815
  2. PEGASYS [Suspect]
     Active Substance: PEGINTERFERON ALFA-2A
     Route: 058
     Dates: start: 20140905
  3. HELEX [Concomitant]
     Indication: ANXIETY
     Route: 048
  4. HELEX [Concomitant]
     Indication: INSOMNIA
  5. ISOSORBIDE MONONITRATE. [Concomitant]
     Active Substance: ISOSORBIDE MONONITRATE
     Indication: TACHYCARDIA
     Route: 048
  6. HELEX [Concomitant]
     Indication: TENSION
  7. CONTROLOC [Concomitant]
     Active Substance: PANTOPRAZOLE SODIUM
     Indication: GASTRITIS
     Dosage: AS NEEDED
     Route: 065

REACTIONS (4)
  - Hyperthyroidism [Recovering/Resolving]
  - Anti-thyroid antibody [Unknown]
  - Leukopenia [Recovered/Resolved]
  - Neutropenia [Recovered/Resolved]

NARRATIVE: CASE EVENT DATE: 20140725
